FAERS Safety Report 9132962 (Version 2)
Quarter: 2013Q2

REPORT INFORMATION
  Report Type: Spontaneous
  Country: FR (occurrence: FR)
  Receive Date: 20130301
  Receipt Date: 20130401
  Transmission Date: 20140414
  Serious: Yes (Death, Life-Threatening, Hospitalization, Congenital Anomaly)
  Sender: FDA-Public Use
  Company Number: PHHY2013FR019870

PATIENT
  Sex: Female
  Weight: 2.7 kg

DRUGS (1)
  1. NISIS [Suspect]
     Indication: HYPERTENSION
     Dosage: 80 MG, DAILY
     Route: 064
     Dates: start: 2012

REACTIONS (5)
  - Deformity [Fatal]
  - Anuria [Fatal]
  - Congenital multiplex arthrogryposis [Fatal]
  - Pulmonary hypoplasia [Fatal]
  - Skull malformation [Fatal]
